FAERS Safety Report 17165255 (Version 1)
Quarter: 2019Q4

REPORT INFORMATION
  Report Type: Spontaneous
  Country: CN (occurrence: CN)
  Receive Date: 20191217
  Receipt Date: 20191217
  Transmission Date: 20200122
  Serious: Yes (Death, Other)
  Sender: FDA-Public Use
  Company Number: CN-BAYER-2019-223068

PATIENT
  Age: 67 Year
  Sex: Male

DRUGS (8)
  1. STIVARGA [Suspect]
     Active Substance: REGORAFENIB
     Indication: COLON CANCER
     Dosage: 80 MG, QD
     Dates: start: 20190807, end: 20190827
  2. OPDIVO [Concomitant]
     Active Substance: NIVOLUMAB
     Dosage: 200 MG
     Dates: start: 20190908, end: 20190908
  3. STIVARGA [Suspect]
     Active Substance: REGORAFENIB
     Indication: METASTASES TO LYMPH NODES
  4. STIVARGA [Suspect]
     Active Substance: REGORAFENIB
     Indication: METASTASES TO LIVER
  5. STIVARGA [Suspect]
     Active Substance: REGORAFENIB
     Indication: METASTASES TO LUNG
  6. OPDIVO [Concomitant]
     Active Substance: NIVOLUMAB
     Dosage: 200 MG
     Dates: start: 20190807, end: 20190807
  7. STIVARGA [Suspect]
     Active Substance: REGORAFENIB
     Indication: ADENOCARCINOMA
     Dosage: 80 UNK
     Dates: start: 20190908, end: 20190928
  8. STIVARGA [Suspect]
     Active Substance: REGORAFENIB
     Indication: K-RAS GENE MUTATION

REACTIONS (4)
  - Death [Fatal]
  - Renal failure [None]
  - Haematuria [None]
  - Oliguria [None]

NARRATIVE: CASE EVENT DATE: 201908
